FAERS Safety Report 19712447 (Version 2)
Quarter: 2022Q1

REPORT INFORMATION
  Report Type: Spontaneous
  Country: JP (occurrence: JP)
  Receive Date: 20210817
  Receipt Date: 20220311
  Transmission Date: 20220424
  Serious: Yes (Other)
  Sender: FDA-Public Use
  Company Number: JP-SUNOVION-2021DSP012468

PATIENT
  Age: 3 Decade
  Sex: Male

DRUGS (4)
  1. LATUDA [Suspect]
     Active Substance: LURASIDONE HYDROCHLORIDE
     Indication: Bipolar disorder
     Dosage: UNK, STARTED 2 DAYS PRIOR TO HOSPITALIZATION
     Route: 048
  2. LITHIUM CARBONATE [Concomitant]
     Active Substance: LITHIUM CARBONATE
     Dosage: UNK
     Route: 065
  3. ARIPIPRAZOLE [Concomitant]
     Active Substance: ARIPIPRAZOLE
     Dosage: UNK
     Route: 065
  4. FLUNITRAZEPAM [Concomitant]
     Active Substance: FLUNITRAZEPAM
     Dosage: UNK
     Route: 065

REACTIONS (2)
  - Neuroleptic malignant syndrome [Unknown]
  - Encephalopathy [Recovered/Resolved]
